FAERS Safety Report 10334280 (Version 5)
Quarter: 2014Q4

REPORT INFORMATION
  Report Type: Report from Study
  Country: AU (occurrence: AU)
  Receive Date: 20140723
  Receipt Date: 20141205
  Transmission Date: 20150528
  Serious: Yes (Death, Hospitalization, Disabling)
  Sender: FDA-Public Use
  Company Number: AU-ROCHE-1438429

PATIENT
  Age: 68 Year
  Sex: Female

DRUGS (1)
  1. ACTEMRA [Suspect]
     Active Substance: TOCILIZUMAB
     Indication: RHEUMATOID ARTHRITIS
     Route: 042
     Dates: start: 20100920, end: 20140829

REACTIONS (4)
  - Pelvic fracture [Recovered/Resolved]
  - Death [Fatal]
  - Condition aggravated [Not Recovered/Not Resolved]
  - Fall [Unknown]

NARRATIVE: CASE EVENT DATE: 201406
